FAERS Safety Report 8809867 (Version 1)
Quarter: 2012Q4

REPORT INFORMATION
  Report Type: 
  Country: CA (occurrence: CA)
  Receive Date: 20120926
  Receipt Date: 20120926
  Transmission Date: 20130627
  Serious: Yes (Other)
  Sender: FDA-Public Use
  Company Number: CA-CELGENEUS-028-50794-12092848

PATIENT
  Sex: Female

DRUGS (1)
  1. VIDAZA [Suspect]
     Indication: MDS
     Route: 065
     Dates: start: 201107, end: 201204

REACTIONS (2)
  - Lip and/or oral cavity cancer [Unknown]
  - Acute myeloid leukaemia [Unknown]
